FAERS Safety Report 12963111 (Version 1)
Quarter: 2016Q4

REPORT INFORMATION
  Report Type: Spontaneous
  Country: US (occurrence: US)
  Receive Date: 20161122
  Receipt Date: 20161122
  Transmission Date: 20170207
  Serious: No
  Sender: FDA-Public Use
  Company Number: US-009507513-1610USA016747

PATIENT
  Sex: Female

DRUGS (1)
  1. EMEND [Suspect]
     Active Substance: APREPITANT
     Dosage: 125 MG, ONCE
     Route: 048
     Dates: start: 20161028, end: 20161028

REACTIONS (1)
  - Full blood count decreased [Unknown]

NARRATIVE: CASE EVENT DATE: 20161028
